FAERS Safety Report 6873057-6 (Version None)
Quarter: 2010Q3

REPORT INFORMATION
  Report Type: 
  Country: None (occurrence: None)
  Receive Date: 20100723
  Receipt Date: 20090122
  Transmission Date: 20110219
  Serious: Yes (Other)
  Sender: FDA-Public Use
  Company Number: US-PFIZER INC-2008097020

PATIENT
  Sex: Male

DRUGS (2)
  1. CHANTIX [Suspect]
     Dates: start: 20080101, end: 20080101
  2. ANTI-ASTHMATICS [Concomitant]
     Indication: ASTHMA

REACTIONS (3)
  - DEPRESSION [None]
  - IRRITABILITY [None]
  - SUICIDAL IDEATION [None]
